FAERS Safety Report 4469923-1 (Version None)
Quarter: 2004Q4

REPORT INFORMATION
  Report Type: 
  Country: None (occurrence: None)
  Receive Date: 20041008
  Receipt Date: 20040802
  Transmission Date: 20050328
  Serious: Yes (Other)
  Sender: FDA-Public Use
  Company Number: PHBS2004JP10290

PATIENT
  Age: 83 Year
  Sex: Male

DRUGS (7)
  1. VOLTAREN [Suspect]
     Indication: LOCALISED OSTEOARTHRITIS
     Dosage: 25 MG, TID
     Route: 048
     Dates: start: 20040305, end: 20040730
  2. APLACE [Concomitant]
     Indication: PROPHYLAXIS AGAINST GASTROINTESTINAL ULCER
     Dosage: 300 MG/DAY
     Route: 048
     Dates: start: 20010221, end: 20040730
  3. AVISHOT [Concomitant]
     Indication: BENIGN PROSTATIC HYPERPLASIA
     Dosage: 75 MG/DAY
     Route: 048
     Dates: start: 20030107, end: 20040730
  4. MYSLEE [Concomitant]
     Route: 048
  5. EBRANTIL [Concomitant]
     Indication: BENIGN PROSTATIC HYPERPLASIA
     Dosage: 30 MG/DAY
     Route: 048
     Dates: start: 20030107, end: 20040730
  6. LENDORMIN [Concomitant]
     Indication: INSOMNIA
     Dosage: 0.25 MG/DAY
     Route: 048
     Dates: start: 20000918, end: 20040730
  7. VIAGRA [Concomitant]
     Dosage: 50 MG/DAY
     Route: 048
     Dates: start: 20021216, end: 20040730

REACTIONS (8)
  - ALVEOLITIS ALLERGIC [None]
  - C-REACTIVE PROTEIN INCREASED [None]
  - CHEST X-RAY ABNORMAL [None]
  - COMPUTERISED TOMOGRAM ABNORMAL [None]
  - DYSPNOEA EXERTIONAL [None]
  - LUNG INFILTRATION [None]
  - MALAISE [None]
  - PYREXIA [None]
